FAERS Safety Report 5662364-0 (Version None)
Quarter: 2008Q1

REPORT INFORMATION
  Report Type: 
  Country: None (occurrence: None)
  Receive Date: 20080313
  Receipt Date: 20080229
  Transmission Date: 20080703
  Serious: Yes (Other)
  Sender: FDA-Public Use
  Company Number: GB-RANBAXY-2008RR-13449

PATIENT

DRUGS (5)
  1. GABAPENTIN BASICS B 600MG FILMTABLETTEN [Suspect]
     Indication: NEURALGIA
  2. ST JOHN'S WORT [Suspect]
  3. PETHIDINE [Suspect]
     Route: 042
  4. TRAMADOL HCL [Suspect]
     Indication: PAIN
     Route: 048
  5. ACETAMINOPHEN [Suspect]
     Indication: PAIN

REACTIONS (2)
  - DRUG INTERACTION [None]
  - SEROTONIN SYNDROME [None]
